FAERS Safety Report 4442707-6 (Version None)
Quarter: 2004Q3

REPORT INFORMATION
  Report Type: 
  Country: None (occurrence: None)
  Receive Date: 20040903
  Receipt Date: 20040517
  Transmission Date: 20050211
  Serious: Yes (Other)
  Sender: FDA-Public Use
  Company Number: 2004UW10233

PATIENT
  Age: 59 Year
  Sex: Female
  Weight: 104.3273 kg

DRUGS (5)
  1. CRESTOR [Suspect]
     Indication: BLOOD CHOLESTEROL INCREASED
     Dosage: 10 MG PO
     Route: 048
     Dates: start: 20040401
  2. MENEST [Concomitant]
  3. NORETHINDRONE ACETATE [Concomitant]
  4. DICLOFENAC [Concomitant]
  5. LISINOPRIL [Concomitant]

REACTIONS (2)
  - DEPRESSION [None]
  - LIBIDO DECREASED [None]
